FAERS Safety Report 10086966 (Version 1)
Quarter: 2014Q2

REPORT INFORMATION
  Report Type: Spontaneous
  Country: US (occurrence: US)
  Receive Date: 20140418
  Receipt Date: 20140418
  Transmission Date: 20141212
  Serious: No
  Sender: FDA-Public Use
  Company Number: US-PFIZER INC-2014106944

PATIENT
  Age: 62 Year
  Sex: Male
  Weight: 90.7 kg

DRUGS (3)
  1. LYRICA [Suspect]
     Indication: NERVE DEGENERATION
     Dosage: 75 MG, 2X/DAY
     Dates: start: 201401
  2. LYRICA [Suspect]
     Dosage: 75 MG, DAILY
     Dates: start: 201404
  3. ENALAPRIL [Concomitant]
     Indication: HYPERTENSION
     Dosage: 12.5 MG, DAILY

REACTIONS (5)
  - Drug withdrawal syndrome [Unknown]
  - Hyperhidrosis [Unknown]
  - Feeling abnormal [Unknown]
  - Abdominal discomfort [Unknown]
  - Anxiety [Unknown]
